FAERS Safety Report 9422232 (Version 1)
Quarter: 2013Q3

REPORT INFORMATION
  Report Type: Spontaneous
  Country: CA (occurrence: CA)
  Receive Date: 20130726
  Receipt Date: 20130726
  Transmission Date: 20140515
  Serious: Yes (Death, Other)
  Sender: FDA-Public Use
  Company Number: CA-PFIZER INC-2013215671

PATIENT
  Age: 41 Year
  Sex: Male
  Weight: 79.37 kg

DRUGS (2)
  1. CHAMPIX [Suspect]
     Indication: SMOKING CESSATION THERAPY
     Dosage: UNK
     Dates: start: 201209, end: 2012
  2. CHAMPIX [Suspect]
     Dosage: UNK
     Dates: start: 201301

REACTIONS (7)
  - Completed suicide [Fatal]
  - Paranoia [Unknown]
  - Aggression [Unknown]
  - Abnormal behaviour [Unknown]
  - Abnormal dreams [Unknown]
  - Weight decreased [Unknown]
  - Insomnia [Unknown]
